FAERS Safety Report 9198493 (Version 1)
Quarter: 2013Q1

REPORT INFORMATION
  Report Type: Spontaneous
  Country: BR (occurrence: BR)
  Receive Date: 20130329
  Receipt Date: 20130329
  Transmission Date: 20140127
  Serious: Yes (Other)
  Sender: FDA-Public Use
  Company Number: PHHY2013BR030483

PATIENT
  Age: 61 Year
  Sex: Female

DRUGS (5)
  1. CODATEN [Suspect]
     Indication: PAIN
     Dosage: UNK UKN, UNK
  2. CODATEN [Suspect]
     Indication: ANTIINFLAMMATORY THERAPY
  3. MORPHINE [Concomitant]
     Dosage: UNK UKN, UNK
  4. CODEINE [Concomitant]
     Dosage: UNK UKN, UNK
  5. DICLOFENAC [Concomitant]
     Dosage: UNK UKN, UNK

REACTIONS (4)
  - Abscess [Unknown]
  - Tooth abscess [Unknown]
  - Pain [Unknown]
  - Drug intolerance [Unknown]
